FAERS Safety Report 4599752-X (Version None)
Quarter: 2005Q1

REPORT INFORMATION
  Report Type: 
  Country: None (occurrence: None)
  Receive Date: 20050303
  Receipt Date: 20050225
  Transmission Date: 20050727
  Serious: Yes (Hospitalization, Other)
  Sender: FDA-Public Use
  Company Number: KII-2005-0015360

PATIENT
  Age: 46 Year
  Sex: Female

DRUGS (4)
  1. OXYCODONE HCL [Suspect]
     Dosage: ORAL
     Route: 048
  2. CARISOPRODOL [Suspect]
     Dosage: ORAL
     Route: 048
  3. BARBITURATES [Suspect]
  4. BENZODIAZEPINE DERIVATIVES [Suspect]

REACTIONS (9)
  - AGITATION [None]
  - AREFLEXIA [None]
  - COMA [None]
  - CORNEAL REFLEX DECREASED [None]
  - MIOSIS [None]
  - MULTIPLE DRUG OVERDOSE [None]
  - RESPIRATION ABNORMAL [None]
  - RESPIRATORY RATE DECREASED [None]
  - TOXICOLOGIC TEST ABNORMAL [None]
